FAERS Safety Report 4949054-4 (Version None)
Quarter: 2006Q1

REPORT INFORMATION
  Report Type: 
  Country: None (occurrence: None)
  Receive Date: 20060321
  Receipt Date: 20060311
  Transmission Date: 20060701
  Serious: Yes (Other)
  Sender: FDA-Public Use
  Company Number: EG-GLAXOSMITHKLINE-B0416032A

PATIENT
  Age: 40 Year
  Sex: Female

DRUGS (2)
  1. AVANDIA [Suspect]
     Dosage: 4MG PER DAY
     Route: 065
  2. INSULIN [Concomitant]

REACTIONS (6)
  - CARDIAC FAILURE [None]
  - DYSPNOEA [None]
  - HEART RATE INCREASED [None]
  - OEDEMA [None]
  - ORTHOPNOEA [None]
  - VENOUS PRESSURE JUGULAR INCREASED [None]
